FAERS Safety Report 19694392 (Version 2)
Quarter: 2021Q3

REPORT INFORMATION
  Report Type: Report from Study
  Country: JP (occurrence: JP)
  Receive Date: 20210812
  Receipt Date: 20210915
  Transmission Date: 20211014
  Serious: Yes (Other)
  Sender: FDA-Public Use
  Company Number: JP-EMD SERONO-9256990

PATIENT
  Age: 66 Year
  Sex: Female
  Weight: 51 kg

DRUGS (3)
  1. DIPHENHYDRAMINE. [Concomitant]
     Active Substance: DIPHENHYDRAMINE
     Indication: PREMEDICATION
     Route: 041
     Dates: start: 20210317, end: 20210526
  2. BAVENCIO [Suspect]
     Active Substance: AVELUMAB
     Indication: TRANSITIONAL CELL CARCINOMA
     Route: 041
     Dates: start: 20210317
  3. ACETAMINOPHEN. [Concomitant]
     Active Substance: ACETAMINOPHEN
     Indication: PREMEDICATION
     Route: 041
     Dates: start: 20210317, end: 20210526

REACTIONS (4)
  - Diverticulum intestinal haemorrhagic [Unknown]
  - Thyroid disorder [Unknown]
  - Renal impairment [Recovering/Resolving]
  - Disease progression [Unknown]
